FAERS Safety Report 6714284-8 (Version None)
Quarter: 2010Q2

REPORT INFORMATION
  Report Type: 
  Country: None (occurrence: None)
  Receive Date: 20100506
  Receipt Date: 20100126
  Transmission Date: 20101027
  Serious: No
  Sender: FDA-Public Use
  Company Number: US-BAUSCH-2010BL000418

PATIENT
  Age: 42 Year
  Sex: Female

DRUGS (8)
  1. LOTEMAX [Suspect]
     Indication: OCULAR HYPERAEMIA
     Route: 047
     Dates: start: 20100112, end: 20100113
  2. LOTEMAX [Suspect]
     Indication: DRY EYE
     Route: 047
     Dates: start: 20100112, end: 20100113
  3. LOTEMAX [Suspect]
     Indication: OFF LABEL USE
     Route: 047
     Dates: start: 20100112, end: 20100113
  4. LOTEMAX [Suspect]
     Route: 047
     Dates: start: 20100118, end: 20100118
  5. LOTEMAX [Suspect]
     Route: 047
     Dates: start: 20100118, end: 20100118
  6. LOTEMAX [Suspect]
     Route: 047
     Dates: start: 20100118, end: 20100118
  7. SYNTHROID [Concomitant]
  8. MULTI-VITAMINS [Concomitant]

REACTIONS (4)
  - OROPHARYNGEAL PAIN [None]
  - RHINORRHOEA [None]
  - SINUS HEADACHE [None]
  - TOOTHACHE [None]
